FAERS Safety Report 4875742-4 (Version None)
Quarter: 2006Q1

REPORT INFORMATION
  Report Type: 
  Country: None (occurrence: None)
  Receive Date: 20060105
  Receipt Date: 20051229
  Transmission Date: 20060701
  Serious: Yes (Hospitalization, Other)
  Sender: FDA-Public Use
  Company Number: HQWYE427204NOV05

PATIENT
  Age: 20 Year
  Sex: Female

DRUGS (2)
  1. ADVIL [Suspect]
     Dosage: ORAL
     Route: 048
     Dates: end: 20050830
  2. RODOGYL (METRONIDAZOLE/SPIRAMYCIN) [Suspect]
     Indication: TOOTHACHE
     Dosage: ORAL
     Route: 048
     Dates: end: 20050830

REACTIONS (4)
  - INSOMNIA [None]
  - PRURITUS GENERALISED [None]
  - PYREXIA [None]
  - URTICARIA GENERALISED [None]
